FAERS Safety Report 26115087 (Version 1)
Quarter: 2025Q4

REPORT INFORMATION
  Report Type: Spontaneous
  Country: EU (occurrence: EU)
  Receive Date: 20251203
  Receipt Date: 20251203
  Transmission Date: 20260117
  Serious: Yes (Hospitalization)
  Sender: EMD SERONO INC
  Company Number: EU-Merck Healthcare KGaA-2025061626

PATIENT
  Age: 77 Year
  Sex: Female

DRUGS (1)
  1. TEPOTINIB [Suspect]
     Active Substance: TEPOTINIB
     Indication: Non-small cell lung cancer stage IV
     Dates: start: 20250920

REACTIONS (4)
  - Seizure [Unknown]
  - Disease progression [Unknown]
  - Diarrhoea [Unknown]
  - Off label use [Unknown]

NARRATIVE: CASE EVENT DATE: 20251001
